FAERS Safety Report 12921825 (Version 1)
Quarter: 2016Q4

REPORT INFORMATION
  Report Type: Spontaneous
  Country: BR (occurrence: BR)
  Receive Date: 20161108
  Receipt Date: 20161108
  Transmission Date: 20170207
  Serious: Yes (Death, Congenital Anomaly, Other)
  Sender: FDA-Public Use
  Company Number: BR-009507513-1206BRA00058B1

PATIENT
  Sex: Male
  Weight: 1.01 kg

DRUGS (2)
  1. LOSARTAN POTASSIUM. [Suspect]
     Active Substance: LOSARTAN POTASSIUM
     Route: 064
  2. METHYLDOPA. [Suspect]
     Active Substance: METHYLDOPA
     Route: 064

REACTIONS (10)
  - Nephropathy [Fatal]
  - Premature baby [Unknown]
  - Muscle contracture [Not Recovered/Not Resolved]
  - Renal aplasia [Fatal]
  - Bone deformity [Not Recovered/Not Resolved]
  - Foetal exposure timing unspecified [Unknown]
  - Oligohydramnios [Unknown]
  - Umbilical cord vascular disorder [Unknown]
  - Cardiac arrest [Fatal]
  - Low birth weight baby [Unknown]
